FAERS Safety Report 8493892-0 (Version None)
Quarter: 2012Q3

REPORT INFORMATION
  Report Type: 
  Country: None (occurrence: None)
  Receive Date: 20120707
  Receipt Date: 20120702
  Transmission Date: 20120928
  Serious: Yes (Other)
  Sender: FDA-Public Use
  Company Number: GB-BAYER-2012-064872

PATIENT
  Age: 32 Year
  Sex: Female

DRUGS (1)
  1. CLOTRIMAZOLE [Suspect]
     Indication: CANDIDIASIS
     Dosage: 500 MG, UNK
     Route: 067

REACTIONS (3)
  - VAGINAL HAEMORRHAGE [None]
  - RASH [None]
  - PRURITUS [None]
